FAERS Safety Report 18972781 (Version 1)
Quarter: 2021Q1

REPORT INFORMATION
  Report Type: Spontaneous
  Country: HR (occurrence: HR)
  Receive Date: 20210305
  Receipt Date: 20210305
  Transmission Date: 20210420
  Serious: Yes (Other)
  Sender: FDA-Public Use
  Company Number: NVSC2021HR045614

PATIENT
  Sex: Female

DRUGS (5)
  1. PRAZINE (PRAZIQUANTEL) [Suspect]
     Active Substance: PRAZIQUANTEL
     Indication: PRODUCT USED FOR UNKNOWN INDICATION
     Dosage: 1 DF, QD
     Route: 048
     Dates: start: 20210128, end: 20210128
  2. TEGRETOL [Suspect]
     Active Substance: CARBAMAZEPINE
     Indication: PRODUCT USED FOR UNKNOWN INDICATION
     Dosage: UNK (PAR TABLETA)
     Route: 048
     Dates: start: 20210128, end: 20210128
  3. DIAZEPAM. [Suspect]
     Active Substance: DIAZEPAM
     Indication: PRODUCT USED FOR UNKNOWN INDICATION
     Dosage: 40 MG,QD
     Route: 048
     Dates: start: 20210128, end: 20210128
  4. COAXIL [Suspect]
     Active Substance: TIANEPTINE SODIUM
     Indication: PRODUCT USED FOR UNKNOWN INDICATION
     Dosage: 75 MG,QD
     Route: 048
     Dates: start: 20210128, end: 20210128
  5. NOZINAN [Suspect]
     Active Substance: LEVOMEPROMAZINE
     Indication: PRODUCT USED FOR UNKNOWN INDICATION
     Dosage: 5 DF, QD
     Route: 048
     Dates: start: 20210128, end: 20210128

REACTIONS (3)
  - Intentional overdose [Unknown]
  - Suicide attempt [Unknown]
  - No adverse event [Unknown]

NARRATIVE: CASE EVENT DATE: 20210128
